FAERS Safety Report 4287513-0 (Version None)
Quarter: 2004Q1

REPORT INFORMATION
  Report Type: 
  Country: None (occurrence: None)
  Receive Date: 20040209
  Receipt Date: 20030714
  Transmission Date: 20041129
  Serious: No
  Sender: FDA-Public Use
  Company Number: US-GLAXOSMITHKLINE-A0416669A

PATIENT
  Sex: Female

DRUGS (1)
  1. PAXIL CR [Suspect]
     Route: 048
     Dates: start: 20030601

REACTIONS (5)
  - ABNORMAL SENSATION IN EYE [None]
  - CONFUSIONAL STATE [None]
  - FEELING ABNORMAL [None]
  - VERTIGO [None]
  - VISION BLURRED [None]
